FAERS Safety Report 8452737-5 (Version None)
Quarter: 2012Q2

REPORT INFORMATION
  Report Type: 
  Country: None (occurrence: None)
  Receive Date: 20120620
  Receipt Date: 20120430
  Transmission Date: 20120825
  Serious: No
  Sender: FDA-Public Use
  Company Number: US-VERTEX PHARMACEUTICALS INC.-AE-2012-005882

PATIENT
  Sex: Male
  Weight: 61.744 kg

DRUGS (5)
  1. ATENOLOL [Concomitant]
     Route: 048
  2. INCIVEK [Suspect]
     Indication: HEPATITIS C
     Route: 048
     Dates: start: 20120201
  3. TRAMADOL HCL [Concomitant]
     Route: 048
  4. PEGASYS [Concomitant]
     Indication: HEPATITIS C
     Route: 058
     Dates: start: 20120201
  5. RIBASPHERE [Concomitant]
     Indication: HEPATITIS C
     Route: 048
     Dates: start: 20120201

REACTIONS (4)
  - LIP SWELLING [None]
  - DEPRESSION [None]
  - RASH GENERALISED [None]
  - DYSGEUSIA [None]
